FAERS Safety Report 15673330 (Version 2)
Quarter: 2019Q2

REPORT INFORMATION
  Report Type: Spontaneous
  Country: US (occurrence: US)
  Receive Date: 20181129
  Receipt Date: 20190401
  Transmission Date: 20190711
  Serious: No
  Sender: FDA-Public Use
  Company Number: US-PFIZER INC-2018485223

PATIENT
  Age: 54 Year
  Sex: Male

DRUGS (4)
  1. BAYER BACK AND BODY [Concomitant]
     Dosage: UNK
     Dates: start: 201701
  2. FLECTOR [Suspect]
     Active Substance: DICLOFENAC EPOLAMINE
     Indication: BACK INJURY
  3. SALON PAS PATCH [Concomitant]
     Dosage: UNK
     Dates: start: 201602
  4. FLECTOR [Suspect]
     Active Substance: DICLOFENAC EPOLAMINE
     Indication: BACK PAIN
     Dosage: UNK UNK, DAILY (ON PATCH DAILY )
     Dates: start: 2018

REACTIONS (2)
  - Therapeutic product effect incomplete [Unknown]
  - Product quality issue [Unknown]

NARRATIVE: CASE EVENT DATE: 2018
